FAERS Safety Report 4417493-6 (Version None)
Quarter: 2004Q3

REPORT INFORMATION
  Report Type: 
  Country: None (occurrence: None)
  Receive Date: 20040804
  Receipt Date: 20040720
  Transmission Date: 20050211
  Serious: Yes (Hospitalization)
  Sender: FDA-Public Use
  Company Number: 2004049117

PATIENT
  Age: 65 Year
  Sex: Female
  Weight: 56.6996 kg

DRUGS (3)
  1. BENADRYL ALLERGY SINUS HEADACHE (DIPHENHYDRAMINE, PARACETAMOL, PSEUDOE [Suspect]
     Indication: SINUS HEADACHE
     Dosage: 2 CAPLETS, QD, ORAL
     Route: 048
  2. ASPIRIN [Suspect]
     Indication: RHEUMATOID ARTHRITIS
     Dosage: SIX 325 MG TABLET, ORAL
     Route: 048
  3. PREDNISONE [Concomitant]

REACTIONS (1)
  - GASTRIC ULCER [None]
